FAERS Safety Report 5961670-X (Version None)
Quarter: 2008Q4

REPORT INFORMATION
  Report Type: 
  Country: None (occurrence: None)
  Receive Date: 20081121
  Receipt Date: 20081117
  Transmission Date: 20090506
  Serious: Yes (Death)
  Sender: FDA-Public Use
  Company Number: JP-BRACCO-001204

PATIENT
  Age: 64 Year
  Sex: Male

DRUGS (18)
  1. IOPAMIDOL [Suspect]
     Indication: CARDIAC IMAGING PROCEDURE
     Dosage: 5 ML/SEC
     Route: 042
     Dates: start: 20081008, end: 20081008
  2. IOPAMIDOL [Suspect]
     Indication: ANGINA PECTORIS
     Dosage: 5 ML/SEC
     Route: 042
     Dates: start: 20081008, end: 20081008
  3. VALSARTAN [Concomitant]
     Route: 048
  4. ADALAT CC [Concomitant]
     Route: 048
  5. CARDENALIN [Concomitant]
     Route: 048
  6. RENAGEL [Concomitant]
     Route: 048
  7. NIFEDIPINE [Concomitant]
     Route: 048
  8. BASEN [Concomitant]
     Route: 048
  9. SELBEX [Concomitant]
     Route: 048
  10. IOHEXOL [Concomitant]
     Indication: COMPUTERISED TOMOGRAM
     Route: 065
     Dates: start: 20070806, end: 20070806
  11. IOHEXOL [Concomitant]
     Route: 065
     Dates: start: 20080319, end: 20080319
  12. IOHEXOL [Concomitant]
     Route: 065
     Dates: start: 20080827, end: 20080827
  13. IOHEXOL [Concomitant]
     Route: 065
     Dates: start: 20051026, end: 20051026
  14. IOPAMIDOL [Concomitant]
     Indication: COMPUTERISED TOMOGRAM
     Route: 065
     Dates: start: 20070226, end: 20070226
  15. IOPAMIDOL [Concomitant]
     Indication: COMPUTERISED TOMOGRAM
     Route: 065
     Dates: start: 20070803, end: 20070803
  16. LANSOPRAZOLE [Concomitant]
     Route: 048
  17. ASPIRIN [Concomitant]
     Route: 048
  18. NORVASC [Concomitant]
     Route: 048

REACTIONS (2)
  - ANAPHYLACTIC SHOCK [None]
  - DISSEMINATED INTRAVASCULAR COAGULATION [None]
